FAERS Safety Report 5132988-8 (Version None)
Quarter: 2006Q4

REPORT INFORMATION
  Report Type: 
  Country: None (occurrence: None)
  Receive Date: 20061017
  Receipt Date: 20061004
  Transmission Date: 20070319
  Serious: Yes (Other)
  Sender: FDA-Public Use
  Company Number: SPV1-2006-01092

PATIENT
  Sex: 0

DRUGS (1)
  1. MIDODRINE (MIDODRINE) TABLET [Suspect]
     Indication: ORTHOSTATIC HYPOTENSION

REACTIONS (5)
  - ANXIETY [None]
  - CEREBRAL HAEMORRHAGE [None]
  - FALL [None]
  - INTESTINAL OBSTRUCTION [None]
  - SYNCOPE [None]
